FAERS Safety Report 15766536 (Version 2)
Quarter: 2019Q1

REPORT INFORMATION
  Report Type: Spontaneous
  Country: US (occurrence: US)
  Receive Date: 20181227
  Receipt Date: 20190129
  Transmission Date: 20190417
  Serious: Yes (Other)
  Sender: FDA-Public Use
  Company Number: US-GLAXOSMITHKLINE-US2018230873

PATIENT
  Age: 52 Year
  Sex: Male

DRUGS (1)
  1. CITRUCEL [Suspect]
     Active Substance: METHYLCELLULOSE (4000 MPA.S)
     Indication: GASTROINTESTINAL DISORDER
     Dosage: UNK

REACTIONS (5)
  - Off label use [Unknown]
  - Incorrect product administration duration [Unknown]
  - Haematochezia [Not Recovered/Not Resolved]
  - Product complaint [Unknown]
  - Incorrect dose administered [Unknown]
